FAERS Safety Report 4981388-X (Version None)
Quarter: 2006Q2

REPORT INFORMATION
  Report Type: 
  Country: None (occurrence: None)
  Receive Date: 20060424
  Receipt Date: 20051025
  Transmission Date: 20061013
  Serious: Yes (Hospitalization, Disabling, Other)
  Sender: FDA-Public Use
  Company Number: PR-MERCK-0510USA08998

PATIENT
  Age: 54 Year
  Sex: Female
  Weight: 62 kg

DRUGS (2)
  1. VIOXX [Suspect]
     Indication: JOINT DISLOCATION
     Route: 048
     Dates: start: 20000501, end: 20001001
  2. LASIX [Concomitant]
     Route: 065
     Dates: start: 20000101, end: 20020101

REACTIONS (8)
  - ABDOMINAL PAIN [None]
  - ANGINA PECTORIS [None]
  - CARDIAC DISORDER [None]
  - CORONARY ARTERY DISEASE [None]
  - ISCHAEMIA [None]
  - MYOCARDIAL INFARCTION [None]
  - OVERDOSE [None]
  - TRACHEAL STENOSIS [None]
